FAERS Safety Report 16982704 (Version 1)
Quarter: 2019Q4

REPORT INFORMATION
  Report Type: Spontaneous
  Country: US (occurrence: US)
  Receive Date: 20191101
  Receipt Date: 20191101
  Transmission Date: 20200122
  Serious: No
  Sender: FDA-Public Use
  Company Number: US-TAKEDA-2019TUS061040

PATIENT
  Age: 62 Year
  Sex: Female

DRUGS (1)
  1. ENTYVIO [Suspect]
     Active Substance: VEDOLIZUMAB
     Indication: COLITIS ULCERATIVE
     Dosage: 300 MILLIGRAM
     Dates: end: 20191023

REACTIONS (4)
  - Chills [Unknown]
  - Nausea [Unknown]
  - Headache [Unknown]
  - Flushing [Unknown]

NARRATIVE: CASE EVENT DATE: 20191023
